FAERS Safety Report 7367750-9 (Version None)
Quarter: 2011Q1

REPORT INFORMATION
  Report Type: 
  Country: None (occurrence: None)
  Receive Date: 20110322
  Receipt Date: 20110317
  Transmission Date: 20110831
  Serious: Yes (Death)
  Sender: FDA-Public Use
  Company Number: US-PFIZER INC-2011056392

PATIENT
  Sex: Male

DRUGS (1)
  1. SUTENT [Suspect]
     Indication: RENAL CELL CARCINOMA
     Dosage: 50 MG, 1X/DAY 4 WEEKS ON/2 WEEKS OFF
     Dates: start: 20110210

REACTIONS (2)
  - DISEASE PROGRESSION [None]
  - RENAL CELL CARCINOMA [None]
